FAERS Safety Report 14795274 (Version 2)
Quarter: 2018Q2

REPORT INFORMATION
  Report Type: Spontaneous
  Country: ZA (occurrence: ZA)
  Receive Date: 20180423
  Receipt Date: 20180514
  Transmission Date: 20180711
  Serious: Yes (Hospitalization)
  Sender: FDA-Public Use
  Company Number: ZA-PFIZER INC-2018145392

PATIENT
  Age: 60 Year
  Sex: Male

DRUGS (6)
  1. TRUSTAN [Suspect]
     Active Substance: ESOMEPRAZOLE
     Dosage: 40 MG, UNK
  2. EPANUTIN [Suspect]
     Active Substance: PHENYTOIN SODIUM
     Indication: EPILEPSY
     Dosage: 100 MG, UNK
  3. FOXAIR [Suspect]
     Active Substance: FLUTICASONE PROPIONATE\SALMETEROL XINAFOATE
     Dosage: 50/250MG
  4. PAX /00017001/ [Suspect]
     Active Substance: DIAZEPAM
     Dosage: 10 MG, UNK
  5. SINGULAIR [Suspect]
     Active Substance: MONTELUKAST SODIUM
     Dosage: 10 MG, UNK
  6. ELTROXIN [Suspect]
     Active Substance: LEVOTHYROXINE
     Dosage: 100 UG, UNK

REACTIONS (1)
  - Lung infection [Recovering/Resolving]

NARRATIVE: CASE EVENT DATE: 20180327
